FAERS Safety Report 9454305 (Version 1)
Quarter: 2013Q3

REPORT INFORMATION
  Report Type: Spontaneous
  Country: US (occurrence: None)
  Receive Date: 20130809
  Receipt Date: 20130809
  Transmission Date: 20140515
  Serious: No
  Sender: FDA-Public Use
  Company Number: None

PATIENT
  Age: 39 Year
  Sex: Female
  Weight: 100.25 kg

DRUGS (2)
  1. GABAPENTIN [Suspect]
     Indication: NEUROPATHY PERIPHERAL
     Dosage: 1 CAPSULE ONCE DAILY TAKEN BY MOUTH
     Route: 048
     Dates: start: 20130719, end: 20130802
  2. GABAPENTIN [Suspect]
     Indication: DYSAESTHESIA
     Dosage: 1 CAPSULE ONCE DAILY TAKEN BY MOUTH
     Route: 048
     Dates: start: 20130719, end: 20130802

REACTIONS (11)
  - Coordination abnormal [None]
  - Balance disorder [None]
  - Tremor [None]
  - Fatigue [None]
  - Asthenia [None]
  - Visual impairment [None]
  - Sedation [None]
  - Dyskinesia [None]
  - Arthropathy [None]
  - Contusion [None]
  - Fall [None]
